FAERS Safety Report 6953044-X (Version None)
Quarter: 2010Q3

REPORT INFORMATION
  Report Type: 
  Country: None (occurrence: None)
  Receive Date: 20100829
  Receipt Date: 20100527
  Transmission Date: 20110219
  Serious: No
  Sender: FDA-Public Use
  Company Number: US-ABBOTT-10P-163-0647320-00

PATIENT
  Sex: Male
  Weight: 65.83 kg

DRUGS (6)
  1. NIASPAN [Suspect]
     Indication: BLOOD CHOLESTEROL INCREASED
     Dosage: AT BEDTIME
     Dates: start: 20100101
  2. NIASPAN [Suspect]
     Dosage: AT BEDTIME
  3. METFORMIN [Concomitant]
     Indication: PRODUCT USED FOR UNKNOWN INDICATION
  4. DIOVAN [Concomitant]
     Indication: PRODUCT USED FOR UNKNOWN INDICATION
  5. GLYBURIDE [Concomitant]
     Indication: PRODUCT USED FOR UNKNOWN INDICATION
  6. HYDROCODONE BITARTRATE [Concomitant]
     Indication: PAIN

REACTIONS (5)
  - FATIGUE [None]
  - FEELING ABNORMAL [None]
  - PARAESTHESIA [None]
  - PRURITUS [None]
  - SWELLING [None]
